FAERS Safety Report 8603746-4 (Version None)
Quarter: 2012Q3

REPORT INFORMATION
  Report Type: 
  Country: None (occurrence: None)
  Receive Date: 20120817
  Receipt Date: 20120106
  Transmission Date: 20120928
  Serious: No
  Sender: FDA-Public Use
  Company Number: US-ASTRAZENECA-2012SE01157

PATIENT
  Age: 63 Year
  Sex: Female

DRUGS (2)
  1. CRESTOR [Suspect]
     Route: 048
     Dates: end: 20110101
  2. ANASTROZOLE [Suspect]
     Indication: BREAST CANCER
     Route: 048

REACTIONS (4)
  - ARTHRALGIA [None]
  - DRUG PRESCRIBING ERROR [None]
  - MUSCLE ATROPHY [None]
  - BONE PAIN [None]
